FAERS Safety Report 4782550-1 (Version None)
Quarter: 2005Q3

REPORT INFORMATION
  Report Type: 
  Country: None (occurrence: None)
  Receive Date: 20050929
  Receipt Date: 20050311
  Transmission Date: 20060218
  Serious: No
  Sender: FDA-Public Use
  Company Number: US-GLAXOSMITHKLINE-A0549403A

PATIENT
  Sex: Female

DRUGS (7)
  1. COREG [Suspect]
     Dosage: 12.5MG TWICE PER DAY
     Route: 048
     Dates: start: 20041220
  2. ASPIRIN [Concomitant]
  3. LISINOPRIL [Concomitant]
  4. POTASSIUM [Concomitant]
  5. NITRO [Concomitant]
  6. LIPITOR [Concomitant]
  7. LASIX [Concomitant]

REACTIONS (1)
  - RESTLESS LEGS SYNDROME [None]
